FAERS Safety Report 25418474 (Version 1)
Quarter: 2025Q2

REPORT INFORMATION
  Report Type: Spontaneous
  Country: US (occurrence: None)
  Receive Date: 20250606
  Receipt Date: 20250606
  Transmission Date: 20250717
  Serious: Yes (Hospitalization)
  Sender: FDA-CTU
  Company Number: None

PATIENT
  Sex: Female
  Weight: 50.4 kg

DRUGS (1)
  1. WINREVAIR [Suspect]
     Active Substance: SOTATERCEPT-CSRK
     Indication: Pulmonary arterial hypertension
     Route: 058
     Dates: start: 20240709

REACTIONS (6)
  - Therapy change [None]
  - Hypotonia [None]
  - Asthenia [None]
  - Oxygen saturation decreased [None]
  - Pulmonary arterial hypertension [None]
  - Condition aggravated [None]
